FAERS Safety Report 14823646 (Version 1)
Quarter: 2018Q2

REPORT INFORMATION
  Report Type: Report from Study
  Country: US (occurrence: US)
  Receive Date: 20180428
  Receipt Date: 20180428
  Transmission Date: 20180711
  Serious: Yes (Hospitalization)
  Sender: FDA-Public Use
  Company Number: US-VIFOR (INTERNATIONAL) INC.-VIT-2017-02440

PATIENT
  Sex: Male

DRUGS (27)
  1. RANEXA [Concomitant]
     Active Substance: RANOLAZINE
  2. LISINOPRIL. [Concomitant]
     Active Substance: LISINOPRIL
  3. COLECALCIFEROL [Concomitant]
     Active Substance: CHOLECALCIFEROL
  4. CALCITRIOL. [Concomitant]
     Active Substance: CALCITRIOL
  5. METHOCARBAMOL. [Concomitant]
     Active Substance: METHOCARBAMOL
  6. VELTASSA [Suspect]
     Active Substance: PATIROMER
     Indication: HYPERKALAEMIA
     Route: 048
  7. ISOSORBIDE. [Concomitant]
     Active Substance: ISOSORBIDE
  8. CRESTOR [Concomitant]
     Active Substance: ROSUVASTATIN CALCIUM
  9. ALFA LIPOIC ACID [Concomitant]
  10. METOPROLOL TARTRATE. [Concomitant]
     Active Substance: METOPROLOL TARTRATE
  11. ESCITALOPRAM [Concomitant]
     Active Substance: ESCITALOPRAM OXALATE
  12. GLYBURIDE. [Concomitant]
     Active Substance: GLYBURIDE
  13. MECLIZINE [Concomitant]
     Active Substance: MECLIZINE HYDROCHLORIDE
  14. NIACIN. [Concomitant]
     Active Substance: NIACIN
  15. METOPROLOL. [Concomitant]
     Active Substance: METOPROLOL
  16. CLOPIDOGREL [Concomitant]
     Active Substance: CLOPIDOGREL BISULFATE
  17. SODIUM BICARBONATE. [Concomitant]
     Active Substance: SODIUM BICARBONATE
  18. AMOX/K CLAV [Concomitant]
     Active Substance: AMOXICILLIN\CLAVULANATE POTASSIUM
  19. ACETYLSALICYLIC ACID [Concomitant]
     Active Substance: ASPIRIN
  20. INSULIN [Concomitant]
     Active Substance: INSULIN NOS
  21. ALLOPURINOL. [Concomitant]
     Active Substance: ALLOPURINOL
  22. GINKO [Concomitant]
     Active Substance: GINKGO
  23. AMLODIPINE [Concomitant]
     Active Substance: AMLODIPINE BESYLATE
  24. INDOMETACIN [Concomitant]
     Active Substance: INDOMETHACIN
  25. ASA [Concomitant]
     Active Substance: ASPIRIN
  26. ISOSORBIDE DINITRATE. [Concomitant]
     Active Substance: ISOSORBIDE DINITRATE
  27. VELTASSA [Suspect]
     Active Substance: PATIROMER
     Route: 048
     Dates: start: 20160915

REACTIONS (5)
  - Constipation [Not Recovered/Not Resolved]
  - Rash erythematous [Unknown]
  - Adverse event [Not Recovered/Not Resolved]
  - Cerebrovascular accident [Not Recovered/Not Resolved]
  - Drug dose omission [Unknown]
